FAERS Safety Report 8287481-0 (Version None)
Quarter: 2012Q2

REPORT INFORMATION
  Report Type: 
  Country: None (occurrence: None)
  Receive Date: 20120410
  Receipt Date: 20120410
  Transmission Date: 20120825
  Serious: No
  Sender: FDA-Public Use
  Company Number: None

PATIENT
  Sex: Female
  Weight: 85.2762 kg

DRUGS (1)
  1. FUSILEV [Suspect]
     Indication: COLORECTAL CANCER METASTATIC
     Dosage: 385MG Q 2WKS IV
     Route: 042
     Dates: start: 20120213

REACTIONS (4)
  - DIARRHOEA [None]
  - NAUSEA [None]
  - INFUSION SITE REACTION [None]
  - VOMITING [None]
